FAERS Safety Report 5321962-4 (Version None)
Quarter: 2007Q2

REPORT INFORMATION
  Report Type: 
  Country: None (occurrence: None)
  Receive Date: 20070511
  Receipt Date: 20070502
  Transmission Date: 20071010
  Serious: Yes (Other)
  Sender: FDA-Public Use
  Company Number: PHEH2007US04937

PATIENT
  Age: 56 Year
  Sex: Female

DRUGS (5)
  1. ZELNORM [Suspect]
     Indication: IRRITABLE BOWEL SYNDROME
     Dosage: 6 MG, BID
     Dates: start: 20050314, end: 20070101
  2. PREMARIN [Concomitant]
     Dosage: 6.25 MG, QD
  3. CLORAZEPATE [Concomitant]
     Indication: PANIC ATTACK
     Dosage: 7.5 MG, QD
  4. VIOKASE [Concomitant]
     Indication: DYSPEPSIA
     Dosage: 800 U, TID
  5. TRANSENE [Concomitant]
     Dosage: 7.5 MG, Q8H
     Dates: start: 20000101

REACTIONS (4)
  - DEHYDRATION [None]
  - DIARRHOEA [None]
  - NAUSEA [None]
  - WEIGHT DECREASED [None]
